FAERS Safety Report 4391511-6 (Version None)
Quarter: 2004Q3

REPORT INFORMATION
  Report Type: 
  Country: None (occurrence: None)
  Receive Date: 20040702
  Receipt Date: 20040312
  Transmission Date: 20050211
  Serious: Yes (Life-Threatening, Hospitalization)
  Sender: FDA-Public Use
  Company Number: 2004UW04759

PATIENT
  Age: 55 Year
  Sex: Female

DRUGS (2)
  1. CRESTOR [Suspect]
     Dosage: 20 MG HS PO
     Route: 048
  2. TRICOR [Suspect]
     Dosage: 160 MG QD PO
     Route: 048

REACTIONS (1)
  - RHABDOMYOLYSIS [None]
